FAERS Safety Report 8932293 (Version 2)
Quarter: 2012Q4

REPORT INFORMATION
  Report Type: 
  Country: US (occurrence: US)
  Receive Date: 20121128
  Receipt Date: 20121219
  Transmission Date: 20130627
  Serious: Yes (Hospitalization, Other)
  Sender: FDA-Public Use
  Company Number: US-JNJFOC-20121110740

PATIENT
  Sex: Female
  Weight: 105.69 kg

DRUGS (22)
  1. LEVAQUIN [Suspect]
     Indication: PRODUCT USED FOR UNKNOWN INDICATION
     Route: 065
     Dates: start: 2012, end: 2012
  2. LYRICA [Suspect]
     Indication: HYPOAESTHESIA
     Route: 048
     Dates: start: 201203, end: 201203
  3. LYRICA [Suspect]
     Indication: NEUROPATHY PERIPHERAL
     Route: 048
     Dates: start: 201203, end: 201203
  4. AMITRIPTYLINE [Suspect]
     Indication: SLEEP DISORDER
     Route: 065
     Dates: start: 2012
  5. AMITRIPTYLINE [Suspect]
     Indication: SLEEP DISORDER
     Route: 065
  6. LOVENOX [Suspect]
     Indication: PRODUCT USED FOR UNKNOWN INDICATION
     Route: 065
     Dates: start: 2012
  7. ANTIBIOTICS [Suspect]
     Indication: PRODUCT USED FOR UNKNOWN INDICATION
     Route: 065
     Dates: start: 2012
  8. METFORMIN [Concomitant]
     Indication: DIABETES MELLITUS
     Route: 065
  9. PROCRIT [Concomitant]
     Route: 065
  10. ALPRAZOLAM [Concomitant]
     Route: 065
  11. ALLOPURINOL [Concomitant]
     Route: 065
  12. HYDROCODONE [Concomitant]
     Indication: BACK PAIN
     Route: 065
  13. HYOSCYAMINE [Concomitant]
     Route: 060
  14. CARDIZEM [Concomitant]
     Route: 065
  15. PROPRANOLOL [Concomitant]
     Route: 048
  16. RANITIDINE [Concomitant]
     Route: 048
  17. TORSEMIDE [Concomitant]
     Route: 065
  18. KLOR-CON [Concomitant]
     Route: 065
  19. ASPIRIN [Concomitant]
     Route: 065
  20. WARFARIN [Concomitant]
     Route: 065
  21. TIGAN [Concomitant]
     Indication: NAUSEA
     Route: 048
     Dates: start: 2012
  22. LANSOPRAZOLE [Concomitant]
     Indication: OESOPHAGEAL DISORDER
     Route: 065
     Dates: start: 2012

REACTIONS (9)
  - Arthropathy [Unknown]
  - Heart rate increased [Unknown]
  - Blood glucose decreased [Unknown]
  - Dizziness [Unknown]
  - Dyspnoea [Unknown]
  - Syncope [Unknown]
  - Facial bones fracture [Unknown]
  - Somnolence [Unknown]
  - Bedridden [Unknown]
